FAERS Safety Report 14159863 (Version 3)
Quarter: 2018Q1

REPORT INFORMATION
  Report Type: Report from Study
  Country: IL (occurrence: IL)
  Receive Date: 20171106
  Receipt Date: 20180122
  Transmission Date: 20180508
  Serious: Yes (Hospitalization)
  Sender: FDA-Public Use
  Company Number: IL-ROCHE-2018599

PATIENT
  Age: 61 Year
  Sex: Male
  Weight: 98.7 kg

DRUGS (9)
  1. LIPITOR [Concomitant]
     Active Substance: ATORVASTATIN CALCIUM
     Indication: HYPERLIPIDAEMIA
     Route: 065
     Dates: start: 20151201
  2. AEROVENT (ISRAEL) [Concomitant]
     Indication: CHRONIC OBSTRUCTIVE PULMONARY DISEASE
     Route: 065
     Dates: start: 20170627
  3. TRITACE [Concomitant]
     Active Substance: RAMIPRIL
     Indication: HYPERTENSION
     Route: 065
     Dates: start: 20160531
  4. ATEZOLIZUMAB. [Suspect]
     Active Substance: ATEZOLIZUMAB
     Indication: NON-SMALL CELL LUNG CANCER STAGE IV
     Dosage: -ON DAY 1 OF EACH 21-DAY CYCLE?-DATE OF MOST RECENT DOSE OF ATEZOLIZUMAB PRIOR TO EVENT ONSET: 11/JU
     Route: 042
     Dates: start: 20161116
  5. NAB-PACLITAXEL [Suspect]
     Active Substance: PACLITAXEL
     Indication: NON-SMALL CELL LUNG CANCER STAGE IV
     Dosage: -ON DAYS 1, 8, AND 15 OF EACH 21-DAY CYCLE?-DATE OF MOST RECENT DOSE OF NAB-PACLITAXEL PRIOR TO EVEN
     Route: 042
     Dates: start: 20161116
  6. GLUCOMIN [Concomitant]
     Active Substance: METFORMIN HYDROCHLORIDE
     Indication: DIABETES MELLITUS
     Route: 065
     Dates: start: 20160531
  7. CARBOPLATIN. [Suspect]
     Active Substance: CARBOPLATIN
     Indication: NON-SMALL CELL LUNG CANCER STAGE IV
     Dosage: -DATE OF MOST RECENT DOSE OF CARBOPLATIN PRIOR TO EVENT ONSET: 14/MAR/2017 (583 MG)?-ON DAY 1 OF EAC
     Route: 042
     Dates: start: 20161116
  8. MICROPIRIN [Concomitant]
     Active Substance: ASPIRIN
     Indication: PROPHYLAXIS
     Route: 065
     Dates: start: 2016
  9. NEXIUM [Concomitant]
     Active Substance: ESOMEPRAZOLE MAGNESIUM
     Indication: PROPHYLAXIS
     Route: 065
     Dates: start: 20131004

REACTIONS (1)
  - Myxoedema coma [Recovered/Resolved]

NARRATIVE: CASE EVENT DATE: 20171029
